FAERS Safety Report 25092292 (Version 2)
Quarter: 2025Q2

REPORT INFORMATION
  Report Type: Report from Study
  Country: US (occurrence: US)
  Receive Date: 20250319
  Receipt Date: 20250401
  Transmission Date: 20250716
  Serious: Yes (Death)
  Sender: AMNEAL
  Company Number: US-AMNEAL PHARMACEUTICALS-2025-AMRX-00954

PATIENT
  Sex: Male
  Weight: 63.492 kg

DRUGS (2)
  1. CARBIDOPA\LEVODOPA [Suspect]
     Active Substance: CARBIDOPA\LEVODOPA
     Indication: Product used for unknown indication
     Route: 048
  2. CARBIDOPA\LEVODOPA [Suspect]
     Active Substance: CARBIDOPA\LEVODOPA
     Dosage: 36.25-145 MG; 2 CAPSULES, 3X/DAY BEFORE EATING
     Route: 048
     Dates: start: 20230123

REACTIONS (3)
  - Parkinson^s disease [Fatal]
  - Somnolence [Unknown]
  - Treatment noncompliance [Unknown]
